FAERS Safety Report 24978169 (Version 2)
Quarter: 2025Q1

REPORT INFORMATION
  Report Type: Spontaneous
  Country: IT (occurrence: IT)
  Receive Date: 20250217
  Receipt Date: 20250331
  Transmission Date: 20250409
  Serious: Yes (Hospitalization, Other)
  Sender: NOVARTIS
  Company Number: None

PATIENT
  Age: 57 Year
  Sex: Male
  Weight: 74 kg

DRUGS (4)
  1. DABRAFENIB [Suspect]
     Active Substance: DABRAFENIB
     Indication: Metastatic malignant melanoma
     Dosage: 300 MG, QD (150 MG X 2 /DIE)
     Route: 048
     Dates: start: 20241210, end: 20250125
  2. TRAMETINIB [Suspect]
     Active Substance: TRAMETINIB
     Indication: Metastatic malignant melanoma
     Dosage: 2 MG, QD
     Route: 048
     Dates: start: 20241210, end: 20250125
  3. KETOPROFEN [Suspect]
     Active Substance: KETOPROFEN
     Indication: Product used for unknown indication
     Route: 048
     Dates: start: 20250125, end: 20250128
  4. AUGMENTIN [Suspect]
     Active Substance: AMOXICILLIN\CLAVULANATE POTASSIUM
     Indication: Pharyngitis bacterial
     Dosage: 1 G OGNI 8 ORE
     Route: 048
     Dates: start: 20250125, end: 20250128

REACTIONS (2)
  - Toxic epidermal necrolysis [Unknown]
  - Acute kidney injury [Not Recovered/Not Resolved]
